FAERS Safety Report 20482604 (Version 3)
Quarter: 2022Q2

REPORT INFORMATION
  Report Type: Report from Study
  Country: DE (occurrence: DE)
  Receive Date: 20220217
  Receipt Date: 20220415
  Transmission Date: 20220721
  Serious: Yes (Hospitalization, Other)
  Sender: FDA-Public Use
  Company Number: DE-SA-SAC20220202000020

PATIENT
  Age: 62 Year
  Sex: Female
  Weight: 64 kg

DRUGS (8)
  1. ISATUXIMAB [Suspect]
     Active Substance: ISATUXIMAB
     Indication: Plasma cell myeloma
     Dosage: 10 MG/KG, QW
     Route: 042
     Dates: start: 20191011, end: 20191011
  2. ISATUXIMAB [Suspect]
     Active Substance: ISATUXIMAB
     Dosage: 10 MG/KG, QW
     Route: 042
     Dates: start: 20200203, end: 20200203
  3. LENALIDOMIDE [Suspect]
     Active Substance: LENALIDOMIDE
     Indication: Plasma cell myeloma
     Dosage: 10 MG, QD
     Route: 048
     Dates: start: 20191011, end: 20191011
  4. LENALIDOMIDE [Suspect]
     Active Substance: LENALIDOMIDE
     Dosage: 10 MG, QD
     Route: 048
     Dates: start: 20220124, end: 20220124
  5. DEXAMETHASONE [Suspect]
     Active Substance: DEXAMETHASONE
     Indication: Plasma cell myeloma
     Dosage: 20 MG, QD
     Route: 048
     Dates: start: 20191011, end: 20191011
  6. DEXAMETHASONE [Suspect]
     Active Substance: DEXAMETHASONE
     Dosage: 20 MG, QD
     Route: 048
     Dates: start: 20201228, end: 20201228
  7. BORTEZOMIB [Suspect]
     Active Substance: BORTEZOMIB
     Indication: Plasma cell myeloma
     Dosage: 1.3 MG/M2 ON D1, 4, 8, 11, 22, 25, 29, 32
     Route: 058
     Dates: start: 20191011, end: 20191011
  8. BORTEZOMIB [Suspect]
     Active Substance: BORTEZOMIB
     Dosage: 1.3  MG/M2 ON D1, 4, 8, 11, 22, 25, 29, 32
     Route: 058
     Dates: start: 20200206, end: 20200206

REACTIONS (2)
  - Osteonecrosis of jaw [Recovered/Resolved]
  - COVID-19 [Recovered/Resolved]

NARRATIVE: CASE EVENT DATE: 20220131
